FAERS Safety Report 5206307-2 (Version None)
Quarter: 2007Q1

REPORT INFORMATION
  Report Type: 
  Country: None (occurrence: None)
  Receive Date: 20070111
  Receipt Date: 20070109
  Transmission Date: 20070707
  Serious: Yes (Death)
  Sender: FDA-Public Use
  Company Number: NZ-BOEHRINGER INGELHEIM PHARMACEUTICALS, INC.-2006-BP-14010AU

PATIENT
  Sex: Male
  Weight: 90 kg

DRUGS (6)
  1. SPIRIVA [Suspect]
     Indication: CHRONIC OBSTRUCTIVE PULMONARY DISEASE
     Route: 055
  2. PREDNISONE TAB [Concomitant]
  3. SEREVENT [Concomitant]
  4. FLUTICASONE PROPIONATE [Concomitant]
  5. NIZORAL [Concomitant]
  6. DIGOXIN [Concomitant]

REACTIONS (1)
  - DEATH [None]
